FAERS Safety Report 17903461 (Version 3)
Quarter: 2021Q4

REPORT INFORMATION
  Report Type: Spontaneous
  Country: TR (occurrence: TR)
  Receive Date: 20200616
  Receipt Date: 20211129
  Transmission Date: 20220303
  Serious: Yes (Death, Hospitalization, Other)
  Sender: FDA-Public Use
  Company Number: TR-TOLMAR, INC.-20TR020018

PATIENT
  Age: 54 Year
  Sex: Male

DRUGS (9)
  1. ELIGARD [Suspect]
     Active Substance: LEUPROLIDE ACETATE
     Indication: Hormone-refractory prostate cancer
     Dosage: 22.5 MG, Q 3 MONTH
     Route: 058
     Dates: start: 2016
  2. CASODEX [Suspect]
     Active Substance: BICALUTAMIDE
     Indication: Hormone-refractory prostate cancer
     Dosage: UNK
     Dates: start: 2016
  3. DOCETAXEL [Suspect]
     Active Substance: DOCETAXEL
     Indication: Product used for unknown indication
     Dosage: UNK
     Dates: end: 201605
  4. XTANDI [Suspect]
     Active Substance: ENZALUTAMIDE
     Indication: Hormone-refractory prostate cancer
     Route: 048
  5. CABAZITAXEL [Suspect]
     Active Substance: CABAZITAXEL
     Indication: Product used for unknown indication
     Dosage: 52 MILLIGRAM
     Dates: start: 201703
  6. CABAZITAXEL [Suspect]
     Active Substance: CABAZITAXEL
     Dosage: 40 MILLIGRAM
  7. CARBOPLATIN [Suspect]
     Active Substance: CARBOPLATIN
     Indication: Product used for unknown indication
     Dosage: UNK
  8. ETOPOSIDE [Suspect]
     Active Substance: ETOPOSIDE
     Indication: Product used for unknown indication
     Dosage: UNK
  9. GRANULOCYTE COLONY-STIMULATING FACTOR NOS [Concomitant]
     Active Substance: GRANULOCYTE COLONY-STIMULATING FACTOR NOS
     Indication: Prostate cancer metastatic
     Dosage: UNK
     Dates: end: 201605

REACTIONS (11)
  - Septic shock [Fatal]
  - Cytopenia [Unknown]
  - Subdural haematoma [Unknown]
  - Febrile neutropenia [Unknown]
  - Anaemia [Unknown]
  - Blood testosterone abnormal [Unknown]
  - Prostate cancer [Unknown]
  - Blood lactate dehydrogenase increased [Unknown]
  - Confusional state [Unknown]
  - Prostatic specific antigen increased [Recovering/Resolving]
  - Drug ineffective [Unknown]

NARRATIVE: CASE EVENT DATE: 20161101
